FAERS Safety Report 6718377-0 (Version None)
Quarter: 2010Q2

REPORT INFORMATION
  Report Type: 
  Country: None (occurrence: None)
  Receive Date: 20100510
  Receipt Date: 20100426
  Transmission Date: 20101027
  Serious: Yes (Life-Threatening, Hospitalization)
  Sender: FDA-Public Use
  Company Number: GB-MYLANLABS-2010S1007096

PATIENT
  Age: 18 Year
  Sex: Male

DRUGS (9)
  1. CLARITHROMYCIN [Suspect]
     Indication: DRUG USE FOR UNKNOWN INDICATION
     Dates: start: 20100408
  2. CEFUROXIME [Suspect]
     Indication: DRUG USE FOR UNKNOWN INDICATION
     Route: 042
     Dates: start: 20100406, end: 20100412
  3. CLEXANE [Concomitant]
     Indication: DRUG USE FOR UNKNOWN INDICATION
     Dates: start: 20100410
  4. CODEINE SULFATE [Concomitant]
     Indication: PAIN
     Route: 048
     Dates: start: 20100406
  5. CYCLIZINE [Concomitant]
     Indication: NAUSEA
     Dates: start: 20100407
  6. FOLIC ACID [Concomitant]
     Indication: DRUG USE FOR UNKNOWN INDICATION
     Route: 048
  7. METRONIDAZOLE [Concomitant]
     Indication: CHOLECYSTITIS
     Route: 042
     Dates: start: 20100406, end: 20100412
  8. PARACETAMOL [Concomitant]
     Indication: PAIN
     Route: 048
     Dates: start: 20100405
  9. PHENOXYMETHYLPENICILLIN [Concomitant]
     Indication: DRUG USE FOR UNKNOWN INDICATION
     Route: 048

REACTIONS (6)
  - BLISTER [None]
  - CANDIDIASIS [None]
  - LIP SWELLING [None]
  - MOUTH ULCERATION [None]
  - OROPHARYNGEAL PAIN [None]
  - TONGUE DISCOLOURATION [None]
